FAERS Safety Report 15400097 (Version 4)
Quarter: 2020Q2

REPORT INFORMATION
  Report Type: Spontaneous
  Country: US (occurrence: US)
  Receive Date: 20180919
  Receipt Date: 20200527
  Transmission Date: 20200713
  Serious: Yes (Other)
  Sender: FDA-Public Use
  Company Number: US-BRISTOL-MYERS SQUIBB COMPANY-BMS-2018-084511

PATIENT
  Sex: Male

DRUGS (2)
  1. SPRYCEL [Suspect]
     Active Substance: DASATINIB
     Indication: IRON DEFICIENCY ANAEMIA
     Dosage: 100 MG, QD
     Route: 048
     Dates: start: 20171211
  2. SPRYCEL [Suspect]
     Active Substance: DASATINIB
     Indication: PRODUCT USED FOR UNKNOWN INDICATION
     Dosage: 100 MG, QD
     Route: 048
     Dates: start: 20180608

REACTIONS (7)
  - Memory impairment [Not Recovered/Not Resolved]
  - Intentional product use issue [Unknown]
  - Dizziness [Unknown]
  - Neuropathy peripheral [Unknown]
  - Disturbance in attention [Unknown]
  - Feeling abnormal [Not Recovered/Not Resolved]
  - Fatigue [Not Recovered/Not Resolved]
